FAERS Safety Report 9170479 (Version 1)
Quarter: 2013Q1

REPORT INFORMATION
  Report Type: Spontaneous
  Country: US (occurrence: None)
  Receive Date: 20130315
  Receipt Date: 20130315
  Transmission Date: 20140127
  Serious: Yes (Life-Threatening, Hospitalization)
  Sender: FDA-Public Use
  Company Number: None

PATIENT
  Age: 29 Year
  Sex: Male
  Weight: 74.84 kg

DRUGS (5)
  1. ZITHROMAX [Suspect]
     Dates: start: 20111115, end: 20111119
  2. COREG [Concomitant]
  3. ALTASE [Concomitant]
  4. LASIX [Concomitant]
  5. ALDACTONE [Concomitant]

REACTIONS (2)
  - Ventricular fibrillation [None]
  - Cardiac arrest [None]
